FAERS Safety Report 16570722 (Version 1)
Quarter: 2019Q3

REPORT INFORMATION
  Report Type: Spontaneous
  Country: GB (occurrence: GB)
  Receive Date: 20190715
  Receipt Date: 20190715
  Transmission Date: 20191004
  Serious: Yes (Hospitalization)
  Sender: FDA-Public Use
  Company Number: GB-TEVA-2019-GB-1076560

PATIENT
  Age: 84 Year
  Sex: Female

DRUGS (10)
  1. AMLODIPINE [Concomitant]
     Active Substance: AMLODIPINE BESYLATE
  2. HYDROXOCOBALAMIN [Concomitant]
     Active Substance: HYDROXOCOBALAMIN
  3. PREGABALIN. [Concomitant]
     Active Substance: PREGABALIN
  4. ATORVASTATIN [Concomitant]
     Active Substance: ATORVASTATIN
  5. PARACETAMOL [Concomitant]
     Active Substance: ACETAMINOPHEN
  6. RIVASTIGMINE. [Concomitant]
     Active Substance: RIVASTIGMINE
  7. RAMIPRIL. [Suspect]
     Active Substance: RAMIPRIL
     Indication: ESSENTIAL HYPERTENSION
     Dosage: 2.5 MILLIGRAM DAILY; MORNING
     Route: 048
     Dates: start: 20170401, end: 20190601
  8. CHLORAMPHENICOL [Concomitant]
     Active Substance: CHLORAMPHENICOL
  9. CLOPIDOGREL [Concomitant]
     Active Substance: CLOPIDOGREL BISULFATE
  10. RELVAR ELLIPTA [Concomitant]
     Active Substance: FLUTICASONE FUROATE\VILANTEROL TRIFENATATE

REACTIONS (5)
  - Decreased appetite [Unknown]
  - Fatigue [Unknown]
  - Mobility decreased [Unknown]
  - Acute kidney injury [Recovered/Resolved]
  - Malaise [Unknown]

NARRATIVE: CASE EVENT DATE: 20190601
